FAERS Safety Report 9822071 (Version 1)
Quarter: 2014Q1

REPORT INFORMATION
  Report Type: Spontaneous
  Country: CN (occurrence: None)
  Receive Date: 20140115
  Receipt Date: 20140115
  Transmission Date: 20141002
  Serious: Yes (Hospitalization)
  Sender: FDA-Public Use
  Company Number: 2014P000151

PATIENT
  Age: 37 Year
  Sex: Female

DRUGS (3)
  1. PROGESTERONE [Suspect]
     Indication: MENSTRUATION IRREGULAR
     Route: 048
  2. SALMETEROL XINAFOATE [Concomitant]
  3. FLUTICASONE PROPIONATE POWDER [Concomitant]

REACTIONS (18)
  - Gastrooesophageal reflux disease [None]
  - Drug ineffective [None]
  - Sleep disorder [None]
  - Acute myocardial infarction [None]
  - Irritability [None]
  - Sinus bradycardia [None]
  - Atrioventricular block complete [None]
  - Loss of consciousness [None]
  - Peripheral coldness [None]
  - Ventricular tachycardia [None]
  - Ventricular fibrillation [None]
  - Acute left ventricular failure [None]
  - Sputum discoloured [None]
  - Pericardial effusion [None]
  - Mitral valve incompetence [None]
  - Tricuspid valve incompetence [None]
  - Kounis syndrome [None]
  - Cardiogenic shock [None]
